FAERS Safety Report 12807147 (Version 1)
Quarter: 2016Q4

REPORT INFORMATION
  Report Type: Spontaneous
  Country: US (occurrence: US)
  Receive Date: 20161003
  Receipt Date: 20161003
  Transmission Date: 20170207
  Serious: No
  Sender: FDA-Public Use
  Company Number: None

PATIENT
  Age: 1 Year
  Sex: Male
  Weight: 9 kg

DRUGS (1)
  1. BABY TEETHING (HYLAND HOMEOPATHIC) [Suspect]
     Active Substance: HOMEOPATHICS
     Indication: TEETHING
     Dosage: QUANTITY:135 TABLET(S); 4 TIMES A DAT?
     Route: 048
     Dates: start: 20160701, end: 20160924

REACTIONS (1)
  - Rash [None]

NARRATIVE: CASE EVENT DATE: 20160924
